FAERS Safety Report 9522622 (Version 1)
Quarter: 2013Q1

REPORT INFORMATION
  Report Type: Spontaneous
  Country: US (occurrence: None)
  Receive Date: 20130305
  Receipt Date: 20130305
  Transmission Date: 20140127
  Serious: Yes (Other)
  Sender: FDA-Public Use
  Company Number: 163-21880-12032263

PATIENT
  Age: 68 Year
  Sex: Female

DRUGS (5)
  1. REVLIMID (LENALIDOMIDE) (CAPSULES) [Suspect]
     Indication: PLASMA CELL MYELOMA
     Dosage: 25 MG, 1 IN 1 D, PO
     Route: 048
     Dates: start: 20120224
  2. AMLODIPINE(AMLODI-PINE) (TABLETS) [Concomitant]
  3. LISINOPRIL (LISINO-PRIL) (TABLETS) [Concomitant]
  4. ALLOPURINOL (ALLOP-URINOL) (TABLETS) [Concomitant]
  5. ASPIRIN (ACETYLSALICYLIC ACID) (TABLETS) [Concomitant]

REACTIONS (1)
  - Red blood cell count decreased [None]
